FAERS Safety Report 10147010 (Version 1)
Quarter: 2014Q2

REPORT INFORMATION
  Report Type: Spontaneous
  Country: DK (occurrence: DK)
  Receive Date: 20140501
  Receipt Date: 20140501
  Transmission Date: 20141212
  Serious: Yes (Other)
  Sender: FDA-Public Use
  Company Number: DK-GLAXOSMITHKLINE-B0989845A

PATIENT
  Age: 54 Year
  Sex: Female

DRUGS (1)
  1. IMIGRAN [Suspect]
     Indication: MIGRAINE
     Dosage: .5ML PER DAY
     Route: 042
     Dates: start: 20140417

REACTIONS (2)
  - Suicidal ideation [Unknown]
  - Drug ineffective [Unknown]
